FAERS Safety Report 21764132 (Version 1)
Quarter: 2022Q4

REPORT INFORMATION
  Report Type: Spontaneous
  Country: US (occurrence: US)
  Receive Date: 20221222
  Receipt Date: 20221222
  Transmission Date: 20230112
  Serious: No
  Sender: FDA-Public Use
  Company Number: US-LUPIN PHARMACEUTICALS INC.-2022-14503

PATIENT

DRUGS (1)
  1. JENCYCLA [Suspect]
     Active Substance: NORETHINDRONE
     Indication: Contraception
     Dosage: UNK
     Route: 065

REACTIONS (3)
  - Pruritus [Recovered/Resolved]
  - Product substitution issue [Unknown]
  - Skin striae [Not Recovered/Not Resolved]
